FAERS Safety Report 8052664-1 (Version None)
Quarter: 2012Q1

REPORT INFORMATION
  Report Type: 
  Country: None (occurrence: None)
  Receive Date: 20120118
  Receipt Date: 20120118
  Transmission Date: 20120608
  Serious: No
  Sender: FDA-Public Use
  Company Number: None

PATIENT
  Sex: Female
  Weight: 70.306 kg

DRUGS (1)
  1. BONIVA [Suspect]
     Indication: OSTEOPOROSIS
     Dosage: 150 MG
     Route: 048
     Dates: start: 20111101, end: 20120101

REACTIONS (3)
  - MYALGIA [None]
  - ARTHRALGIA [None]
  - BACK PAIN [None]
